FAERS Safety Report 6578599-9 (Version None)
Quarter: 2010Q1

REPORT INFORMATION
  Report Type: 
  Country: None (occurrence: None)
  Receive Date: 20100211
  Receipt Date: 20100204
  Transmission Date: 20100710
  Serious: Yes (Other)
  Sender: FDA-Public Use
  Company Number: IT-B.I. PHARMACEUTICALS,INC./RIDGEFIELD-2010-DE-00633GD

PATIENT
  Sex: Male
  Weight: 95 kg

DRUGS (8)
  1. TIOTROPIUM [Suspect]
     Indication: ASTHMA
     Dosage: 18 MCG
     Route: 055
  2. PREDNISONE [Suspect]
     Indication: ASTHMA
     Dosage: 25 MG
     Route: 048
  3. PREDNISONE [Suspect]
     Dosage: 50 MG
  4. SALMETEROL-FLUTICASONE [Suspect]
     Indication: ASTHMA
     Dosage: 50 MCG SALMETEROL, 500 MCG FLUTICASONE
     Route: 055
  5. ALBUTEROL [Suspect]
     Indication: ASTHMA
     Route: 055
  6. MOMETASONE FUROATE [Suspect]
     Indication: ASTHMA
     Dosage: 200 MCG
     Route: 045
  7. MONTELUKAST [Suspect]
     Indication: ASTHMA
     Dosage: 10 MG
     Route: 048
  8. WARFARIN SODIUM [Concomitant]
     Indication: THROMBOSIS PROPHYLAXIS
     Route: 048

REACTIONS (3)
  - CATARACT [None]
  - DRUG EFFECT DECREASED [None]
  - DRUG RESISTANCE [None]
